FAERS Safety Report 10101552 (Version 1)
Quarter: 2014Q2

REPORT INFORMATION
  Report Type: Spontaneous
  Country: US (occurrence: None)
  Receive Date: 20140423
  Receipt Date: 20140423
  Transmission Date: 20141212
  Serious: Yes (Hospitalization, Other)
  Sender: FDA-Public Use
  Company Number: None

PATIENT
  Age: 22 Year
  Sex: Female
  Weight: 86.18 kg

DRUGS (2)
  1. LAMOTRIGINE [Suspect]
     Dates: start: 20140314, end: 20140410
  2. VITAMIN D DROPS [Concomitant]

REACTIONS (1)
  - Stevens-Johnson syndrome [None]
